FAERS Safety Report 8314969-6 (Version None)
Quarter: 2012Q2

REPORT INFORMATION
  Report Type: 
  Country: None (occurrence: None)
  Receive Date: 20120426
  Receipt Date: 20120419
  Transmission Date: 20120825
  Serious: Yes (Disabling, Other)
  Sender: FDA-Public Use
  Company Number: US-MERCK-1108USA00976

PATIENT
  Age: 59 Year
  Sex: Female
  Weight: 55 kg

DRUGS (11)
  1. FOSAMAX [Suspect]
     Indication: OSTEOPOROSIS
     Route: 048
     Dates: start: 20070101, end: 20100622
  2. FEXOFENADINE HYDROCHLORIDE [Concomitant]
     Indication: HYPERSENSITIVITY
     Route: 048
     Dates: start: 20101116
  3. RISEDRONATE SODIUM [Suspect]
     Route: 048
     Dates: end: 20100622
  4. FOSAMAX [Suspect]
     Route: 048
     Dates: start: 20080225, end: 20080529
  5. PROTONIX [Concomitant]
     Route: 065
     Dates: start: 20050331
  6. ACTONEL [Suspect]
     Route: 065
  7. CELEBREX [Concomitant]
     Indication: BACK PAIN
     Route: 065
     Dates: start: 20010312
  8. SYNTHROID [Concomitant]
     Route: 065
     Dates: start: 19960101
  9. SYNTHROID [Concomitant]
     Route: 065
     Dates: start: 19960101
  10. FLEXERIL [Concomitant]
     Indication: BACK PAIN
     Route: 048
     Dates: start: 20010312
  11. ALENDRONATE SODIUM [Suspect]
     Indication: OSTEOPOROSIS
     Route: 048
     Dates: start: 20080629, end: 20100501

REACTIONS (25)
  - LIPOMA [None]
  - VITAMIN D DEFICIENCY [None]
  - WOUND DEHISCENCE [None]
  - DENTAL CARIES [None]
  - FISTULA [None]
  - PRURITUS GENERALISED [None]
  - URINARY TRACT INFECTION [None]
  - BRUXISM [None]
  - UTERINE DISORDER [None]
  - TOOTH CROWDING [None]
  - TYPE V HYPERLIPIDAEMIA [None]
  - FOLLICULITIS [None]
  - GASTRITIS [None]
  - HYPERCHOLESTEROLAEMIA [None]
  - BARRETT'S OESOPHAGUS [None]
  - PERNICIOUS ANAEMIA [None]
  - OSTEONECROSIS OF JAW [None]
  - DYSPNOEA [None]
  - TOOTH DISORDER [None]
  - GASTROOESOPHAGEAL REFLUX DISEASE [None]
  - INJURY [None]
  - ELECTROCARDIOGRAM ABNORMAL [None]
  - RENAL CYST [None]
  - TOOTH DISCOLOURATION [None]
  - ARTHROPATHY [None]
